FAERS Safety Report 17636684 (Version 1)
Quarter: 2020Q2

REPORT INFORMATION
  Report Type: Spontaneous
  Country: US (occurrence: US)
  Receive Date: 20200406
  Receipt Date: 20200406
  Transmission Date: 20200713
  Serious: Yes (Other)
  Sender: FDA-Public Use
  Company Number: None

PATIENT
  Age: 28 Year
  Sex: Male
  Weight: 83.25 kg

DRUGS (1)
  1. RHINO PILLS 3600 [Suspect]
     Active Substance: DIETARY SUPPLEMENT
     Indication: ERECTILE DYSFUNCTION
     Route: 048
     Dates: start: 20200406, end: 20200406

REACTIONS (4)
  - Erectile dysfunction [None]
  - Tremor [None]
  - Hyperhidrosis [None]
  - Suicidal ideation [None]

NARRATIVE: CASE EVENT DATE: 20200406
